FAERS Safety Report 6542131-6 (Version None)
Quarter: 2010Q1

REPORT INFORMATION
  Report Type: 
  Country: None (occurrence: None)
  Receive Date: 20100119
  Receipt Date: 20091207
  Transmission Date: 20100710
  Serious: No
  Sender: FDA-Public Use
  Company Number: US-BAYER-200942817NA

PATIENT
  Age: 59 Year
  Sex: Female
  Weight: 44 kg

DRUGS (1)
  1. ULTRAVIST 370 [Suspect]
     Indication: SCAN BRAIN
     Dosage: TOTAL DAILY DOSE: 80 ML  UNIT DOSE: 100 ML
     Route: 042
     Dates: start: 20091204, end: 20091204

REACTIONS (3)
  - PRURITUS [None]
  - RASH [None]
  - URTICARIA [None]
